FAERS Safety Report 4468083-0 (Version None)
Quarter: 2004Q4

REPORT INFORMATION
  Report Type: 
  Country: None (occurrence: None)
  Receive Date: 20041004
  Receipt Date: 20041004
  Transmission Date: 20050328
  Serious: Yes (Other)
  Sender: FDA-Public Use
  Company Number: None

PATIENT
  Age: 86 Year
  Sex: Female
  Weight: 72.1 kg

DRUGS (11)
  1. HYDROCHLOROTHIAZIDE [Suspect]
  2. LISINOPRIL [Concomitant]
  3. VERAPAMIL HCL [Concomitant]
  4. SYNTHROID [Concomitant]
  5. HYDROCHLOROTHIAZIDE [Concomitant]
  6. SIMVASTATIN [Concomitant]
  7. DRESSING, TRANSPARENT, OPSITE [Concomitant]
  8. CLOBETASOL PROPIONATE [Concomitant]
  9. CLOTRIMAZOLE [Concomitant]
  10. ALUMINUM ACETATE EFFER [Concomitant]
  11. BETAMETHASONE DIPROPIONATE [Concomitant]

REACTIONS (1)
  - DIARRHOEA [None]
